FAERS Safety Report 11323095 (Version 4)
Quarter: 2016Q2

REPORT INFORMATION
  Report Type: Report from Study
  Country: HU (occurrence: HU)
  Receive Date: 20150730
  Receipt Date: 20160531
  Transmission Date: 20160815
  Serious: Yes (Death, Hospitalization)
  Sender: FDA-Public Use
  Company Number: HU-ROCHE-1613605

PATIENT
  Age: 65 Year
  Sex: Male
  Weight: 86 kg

DRUGS (47)
  1. PREDNISOLONE. [Concomitant]
     Active Substance: PREDNISOLONE
     Route: 065
     Dates: start: 20140306, end: 20140306
  2. PREDNISOLONE. [Concomitant]
     Active Substance: PREDNISOLONE
     Route: 065
     Dates: start: 20140918, end: 20140918
  3. PREDNISOLONE. [Concomitant]
     Active Substance: PREDNISOLONE
     Route: 065
     Dates: start: 20150108, end: 20150108
  4. PANADOL (HUNGARY) [Concomitant]
     Route: 065
     Dates: start: 20150625, end: 20150625
  5. SUPRASTIN [Concomitant]
     Active Substance: CHLOROPYRAMINE HYDROCHLORIDE
     Route: 065
     Dates: start: 20140326, end: 20140326
  6. SUPRASTIN [Concomitant]
     Active Substance: CHLOROPYRAMINE HYDROCHLORIDE
     Route: 065
     Dates: start: 20141117, end: 20141117
  7. PANADOL (HUNGARY) [Concomitant]
     Indication: PREMEDICATION
     Route: 065
     Dates: start: 20140109, end: 20140109
  8. PANADOL (HUNGARY) [Concomitant]
     Route: 065
     Dates: start: 20150108, end: 20150108
  9. PREDNISOLONE. [Concomitant]
     Active Substance: PREDNISOLONE
     Route: 065
     Dates: start: 20140724, end: 20140727
  10. PREDNISOLONE. [Concomitant]
     Active Substance: PREDNISOLONE
     Route: 065
     Dates: start: 20150430, end: 20150430
  11. PANADOL (HUNGARY) [Concomitant]
     Route: 065
     Dates: start: 20140326, end: 20140326
  12. PANADOL (HUNGARY) [Concomitant]
     Route: 065
     Dates: start: 20141117, end: 20141117
  13. PANADOL (HUNGARY) [Concomitant]
     Route: 065
     Dates: start: 20150430, end: 20150430
  14. PANADOL (HUNGARY) [Concomitant]
     Route: 065
     Dates: start: 20140206, end: 20140206
  15. PANADOL (HUNGARY) [Concomitant]
     Route: 065
     Dates: start: 20140306, end: 20140306
  16. PANADOL (HUNGARY) [Concomitant]
     Route: 065
     Dates: start: 20140403, end: 20140403
  17. SUPRASTIN [Concomitant]
     Active Substance: CHLOROPYRAMINE HYDROCHLORIDE
     Route: 065
     Dates: start: 20140403, end: 20140403
  18. SUPRASTIN [Concomitant]
     Active Substance: CHLOROPYRAMINE HYDROCHLORIDE
     Route: 065
     Dates: start: 20140529, end: 20140529
  19. RITUXIMAB [Suspect]
     Active Substance: RITUXIMAB
     Dosage: 6 CYCLES
     Route: 058
     Dates: start: 201407
  20. PREDNISOLONE. [Concomitant]
     Active Substance: PREDNISOLONE
     Route: 065
     Dates: start: 20140403, end: 20140403
  21. PREDNISOLONE. [Concomitant]
     Active Substance: PREDNISOLONE
     Route: 065
     Dates: start: 20140505, end: 20140505
  22. PREDNISOLONE. [Concomitant]
     Active Substance: PREDNISOLONE
     Route: 065
     Dates: start: 20150529, end: 20150529
  23. PREDNISOLONE. [Concomitant]
     Active Substance: PREDNISOLONE
     Route: 065
     Dates: start: 20140326, end: 20140326
  24. PANADOL (HUNGARY) [Concomitant]
     Route: 065
     Dates: start: 20150305, end: 20150305
  25. SUPRASTIN [Concomitant]
     Active Substance: CHLOROPYRAMINE HYDROCHLORIDE
     Route: 065
     Dates: start: 20140206, end: 20140206
  26. SUPRASTIN [Concomitant]
     Active Substance: CHLOROPYRAMINE HYDROCHLORIDE
     Route: 065
     Dates: start: 20140918, end: 20140918
  27. SUPRASTIN [Concomitant]
     Active Substance: CHLOROPYRAMINE HYDROCHLORIDE
     Route: 065
     Dates: start: 20150108, end: 20150108
  28. SUPRASTIN [Concomitant]
     Active Substance: CHLOROPYRAMINE HYDROCHLORIDE
     Route: 065
     Dates: start: 20150625, end: 20150625
  29. RITUXIMAB [Suspect]
     Active Substance: RITUXIMAB
     Indication: B-CELL LYMPHOMA
     Dosage: MOST RECENT DOSE PRIOR TO SAE ON 25/JUN/2015
     Route: 058
     Dates: start: 20140206, end: 20150719
  30. PREDNISOLONE. [Concomitant]
     Active Substance: PREDNISOLONE
     Route: 065
     Dates: start: 20141117, end: 20141117
  31. PREDNISOLONE. [Concomitant]
     Active Substance: PREDNISOLONE
     Route: 065
     Dates: start: 20150305, end: 20150305
  32. PREDNISOLONE. [Concomitant]
     Active Substance: PREDNISOLONE
     Route: 065
     Dates: start: 20150625, end: 20150625
  33. PANADOL (HUNGARY) [Concomitant]
     Route: 065
     Dates: start: 20150529, end: 20150529
  34. PANADOL (HUNGARY) [Concomitant]
     Route: 065
     Dates: start: 20140724, end: 20140724
  35. SUPRASTIN [Concomitant]
     Active Substance: CHLOROPYRAMINE HYDROCHLORIDE
     Indication: PREMEDICATION
     Route: 065
     Dates: start: 20140109, end: 20140109
  36. SUPRASTIN [Concomitant]
     Active Substance: CHLOROPYRAMINE HYDROCHLORIDE
     Route: 065
     Dates: start: 20140505, end: 20140505
  37. RITUXIMAB [Suspect]
     Active Substance: RITUXIMAB
     Indication: B-CELL LYMPHOMA
     Dosage: ONCE
     Route: 042
     Dates: start: 20140109, end: 20140109
  38. PREDNISOLONE. [Concomitant]
     Active Substance: PREDNISOLONE
     Indication: PREMEDICATION
     Route: 065
     Dates: start: 20140109, end: 20140109
  39. PANADOL (HUNGARY) [Concomitant]
     Route: 065
     Dates: start: 20140918, end: 20140918
  40. PANADOL (HUNGARY) [Concomitant]
     Route: 065
     Dates: start: 20150430, end: 20150430
  41. SUPRASTIN [Concomitant]
     Active Substance: CHLOROPYRAMINE HYDROCHLORIDE
     Route: 065
     Dates: start: 20140306, end: 20140306
  42. SUPRASTIN [Concomitant]
     Active Substance: CHLOROPYRAMINE HYDROCHLORIDE
     Route: 065
     Dates: start: 20150305, end: 20150305
  43. SUPRASTIN [Concomitant]
     Active Substance: CHLOROPYRAMINE HYDROCHLORIDE
     Route: 065
     Dates: start: 20150430, end: 20150430
  44. PREDNISOLONE. [Concomitant]
     Active Substance: PREDNISOLONE
     Route: 065
     Dates: start: 20140206, end: 20140206
  45. PREDNISOLONE. [Concomitant]
     Active Substance: PREDNISOLONE
     Dosage: 7 CYCLES RECEIVED
     Route: 042
     Dates: start: 20120612, end: 20121108
  46. PANADOL (HUNGARY) [Concomitant]
     Route: 065
     Dates: start: 20140505, end: 20140505
  47. SUPRASTIN [Concomitant]
     Active Substance: CHLOROPYRAMINE HYDROCHLORIDE
     Route: 065
     Dates: start: 20140724, end: 20140724

REACTIONS (1)
  - Progressive multifocal leukoencephalopathy [Fatal]

NARRATIVE: CASE EVENT DATE: 20150715
